FAERS Safety Report 8825792 (Version 1)
Quarter: 2012Q4

REPORT INFORMATION
  Report Type: 
  Country: US (occurrence: US)
  Receive Date: 20121004
  Receipt Date: 20121004
  Transmission Date: 20130627
  Serious: Yes (Other)
  Sender: FDA-Public Use
  Company Number: US-ASTRAZENECA-2012SE74380

PATIENT
  Age: 66 Year
  Sex: Female
  Weight: 50.8 kg

DRUGS (12)
  1. NEXIUM [Suspect]
     Indication: BARRETT^S OESOPHAGUS
     Route: 048
     Dates: start: 1997
  2. AMLODIPINE [Concomitant]
     Indication: HYPERTENSION
     Dosage: DAILY
     Route: 048
     Dates: start: 2000
  3. LISINOPRIL [Concomitant]
     Indication: HYPERTENSION
     Dosage: DAILY
     Route: 048
     Dates: start: 2000
  4. GABAPENTIN [Concomitant]
     Indication: CONVULSION
     Dosage: DAILY
     Route: 048
  5. GABAPENTIN [Concomitant]
     Indication: PAIN
     Dosage: DAILY
     Route: 048
  6. LYRICA [Concomitant]
     Indication: FIBROMYALGIA
     Dosage: DAILY
     Route: 048
     Dates: start: 1985
  7. CITALOPRAM [Concomitant]
     Indication: DEPRESSION
     Dosage: DAILY
     Route: 048
     Dates: start: 1987
  8. CYCLOBENZAPRINE [Concomitant]
     Dosage: DAILY
     Route: 048
  9. NEMBUTONE [Concomitant]
     Dosage: DAILY
     Route: 048
  10. LEVOTHROID [Concomitant]
     Indication: THYROID DISORDER
     Dosage: DAILY
     Route: 048
  11. POTASSIUM [Concomitant]
     Dosage: DAILY
     Route: 048
  12. PRAVASTATIN [Concomitant]
     Dosage: DAILY
     Route: 048

REACTIONS (6)
  - Bunion [Unknown]
  - Gastrooesophageal reflux disease [Unknown]
  - Osteoporosis [Unknown]
  - Blood cholesterol increased [Unknown]
  - Hypertension [Unknown]
  - Intentional drug misuse [Unknown]
